FAERS Safety Report 14021966 (Version 1)
Quarter: 2017Q3

REPORT INFORMATION
  Report Type: Spontaneous
  Country: US (occurrence: US)
  Receive Date: 20170928
  Receipt Date: 20170928
  Transmission Date: 20171128
  Serious: No
  Sender: FDA-Public Use
  Company Number: None

PATIENT
  Age: 2 Year
  Sex: Male
  Weight: 13.5 kg

DRUGS (1)
  1. AMOX-CLAV 400-57 MG/ 5 ML SUSPENSION [Suspect]
     Active Substance: AMOXICILLIN\CLAVULANATE POTASSIUM
     Indication: LOCALISED INFECTION
     Dates: start: 20170908, end: 20170911

REACTIONS (2)
  - Incorrect dose administered [None]
  - Drug dispensing error [None]

NARRATIVE: CASE EVENT DATE: 20170908
